FAERS Safety Report 23259641 (Version 1)
Quarter: 2023Q4

REPORT INFORMATION
  Report Type: Spontaneous
  Country: US (occurrence: None)
  Receive Date: 20231204
  Receipt Date: 20231204
  Transmission Date: 20240110
  Serious: Yes (Death, Hospitalization)
  Sender: FDA-Public Use
  Company Number: None

PATIENT
  Age: 80 Year
  Sex: Male

DRUGS (1)
  1. MORPHINE SULFATE [Suspect]
     Active Substance: MORPHINE SULFATE
     Dates: start: 20230802

REACTIONS (7)
  - Confusional state [None]
  - Respiratory depression [None]
  - Sedation [None]
  - Miosis [None]
  - Mental status changes [None]
  - Haematemesis [None]
  - Suicidal ideation [None]

NARRATIVE: CASE EVENT DATE: 20231101
